FAERS Safety Report 9408110 (Version 1)
Quarter: 2013Q3

REPORT INFORMATION
  Report Type: Spontaneous
  Country: JP (occurrence: JP)
  Receive Date: 20130718
  Receipt Date: 20130718
  Transmission Date: 20140515
  Serious: Yes (Hospitalization)
  Sender: FDA-Public Use
  Company Number: JP-GLAXOSMITHKLINE-B0908513A

PATIENT
  Sex: 0

DRUGS (3)
  1. CIGANON [Suspect]
     Indication: SMOKING CESSATION THERAPY
     Route: 062
     Dates: start: 201306
  2. HALCION [Concomitant]
     Route: 048
  3. HARNAL [Concomitant]
     Route: 048

REACTIONS (1)
  - Blood glucose increased [Unknown]
